FAERS Safety Report 24592505 (Version 1)
Quarter: 2024Q4

REPORT INFORMATION
  Report Type: Report from Study
  Country: TR (occurrence: TR)
  Receive Date: 20241108
  Receipt Date: 20241108
  Transmission Date: 20250115
  Serious: Yes (Other)
  Sender: JOHNSON AND JOHNSON
  Company Number: TR-JNJFOC-20241108904

PATIENT
  Age: 54 Year

DRUGS (2)
  1. REMICADE [Suspect]
     Active Substance: INFLIXIMAB
     Indication: Ankylosing spondylitis
     Route: 041
  2. ETANERCEPT [Suspect]
     Active Substance: ETANERCEPT
     Indication: Chronic kidney disease
     Route: 065

REACTIONS (1)
  - Renal cell carcinoma [Unknown]
